FAERS Safety Report 8437134-0 (Version None)
Quarter: 2012Q2

REPORT INFORMATION
  Report Type: 
  Country: None (occurrence: None)
  Receive Date: 20120614
  Receipt Date: 20120402
  Transmission Date: 20120825
  Serious: No
  Sender: FDA-Public Use
  Company Number: US-AMGEN-USASP2012021029

PATIENT
  Sex: Female

DRUGS (8)
  1. VITAMIN B12                        /00056201/ [Concomitant]
  2. LISINOPRIL AND HYDROCHLOROTHIAZIDE [Concomitant]
  3. MULTIVITAMIN                       /00097801/ [Concomitant]
  4. BIOTIN [Concomitant]
  5. FISH OIL [Concomitant]
  6. PROLIA [Suspect]
     Indication: OSTEOPOROSIS POSTMENOPAUSAL
     Dosage: 60 MG, Q6MO
     Dates: start: 20111005
  7. CALCIUM D                          /00944201/ [Concomitant]
  8. LIPITOR [Concomitant]

REACTIONS (2)
  - MEDICATION ERROR [None]
  - NAIL DISORDER [None]
